FAERS Safety Report 23110939 (Version 3)
Quarter: 2023Q4

REPORT INFORMATION
  Report Type: Report from Study
  Country: US (occurrence: US)
  Receive Date: 20231026
  Receipt Date: 20231212
  Transmission Date: 20240110
  Serious: Yes (Other)
  Sender: FDA-Public Use
  Company Number: US-002147023-NVSC2023US228888

PATIENT
  Age: 63 Year
  Sex: Male

DRUGS (3)
  1. ENTRESTO [Suspect]
     Active Substance: SACUBITRIL\VALSARTAN
     Indication: Cardiac failure
     Dosage: UNK
     Route: 065
  2. ENTRESTO [Suspect]
     Active Substance: SACUBITRIL\VALSARTAN
     Dosage: UNK, BID
     Route: 048
     Dates: start: 202306
  3. ENTRESTO [Suspect]
     Active Substance: SACUBITRIL\VALSARTAN
     Dosage: UNK, QD
     Route: 065

REACTIONS (7)
  - Myocardial infarction [Unknown]
  - Hyperhidrosis [Unknown]
  - Vitamin D deficiency [Unknown]
  - Weight bearing difficulty [Unknown]
  - Headache [Unknown]
  - Inappropriate schedule of product administration [Unknown]
  - Hypotension [Unknown]

NARRATIVE: CASE EVENT DATE: 20230504
